FAERS Safety Report 20680770 (Version 1)
Quarter: 2022Q2

REPORT INFORMATION
  Report Type: Report from Study
  Country: US (occurrence: US)
  Receive Date: 20220406
  Receipt Date: 20220406
  Transmission Date: 20220721
  Serious: Yes (Other)
  Sender: FDA-Public Use
  Company Number: US-PREGISTRY-2022-US-00107

PATIENT
  Age: 30 Year
  Sex: Female
  Weight: 92.971 kg

DRUGS (3)
  1. REMDESIVIR [Suspect]
     Active Substance: REMDESIVIR
     Indication: COVID-19
     Dosage: UNK UNK, QD
     Route: 065
     Dates: start: 20220113, end: 20220115
  2. ACETAMINOPHEN [Concomitant]
     Active Substance: ACETAMINOPHEN
     Indication: COVID-19
     Dosage: UNK, QD
     Dates: start: 20220110, end: 20220124
  3. MINERALS\VITAMINS [Concomitant]
     Active Substance: MINERALS\VITAMINS
     Dosage: UNK, QD

REACTIONS (2)
  - Oligohydramnios [Unknown]
  - Maternal exposure during pregnancy [Unknown]

NARRATIVE: CASE EVENT DATE: 20220113
